FAERS Safety Report 5428783-2 (Version None)
Quarter: 2007Q3

REPORT INFORMATION
  Report Type: 
  Country: None (occurrence: None)
  Receive Date: 20070829
  Receipt Date: 20070821
  Transmission Date: 20080115
  Serious: Yes (Hospitalization, Other)
  Sender: FDA-Public Use
  Company Number: PHEH2007US10823

PATIENT
  Age: 52 Year
  Sex: Female
  Weight: 95.238 kg

DRUGS (3)
  1. VIVELLE-DOT [Suspect]
     Indication: HORMONE REPLACEMENT THERAPY
     Dosage: 0.075 MG/DAY, TWICE WEEKLY
     Route: 062
     Dates: start: 20070611, end: 20070724
  2. PROMETRIUM [Suspect]
  3. HYDROCHLOROTHIAZIDE [Concomitant]

REACTIONS (10)
  - BLOOD CHOLESTEROL ABNORMAL [None]
  - BLOOD CHOLESTEROL INCREASED [None]
  - BLOOD TRIGLYCERIDES INCREASED [None]
  - CEREBROVASCULAR ACCIDENT [None]
  - HYPERLIPIDAEMIA [None]
  - HYPOAESTHESIA [None]
  - LOW DENSITY LIPOPROTEIN INCREASED [None]
  - OVERWEIGHT [None]
  - SPEECH DISORDER [None]
  - VERY LOW DENSITY LIPOPROTEIN INCREASED [None]
